FAERS Safety Report 20935055 (Version 8)
Quarter: 2023Q4

REPORT INFORMATION
  Report Type: Spontaneous
  Country: US (occurrence: US)
  Receive Date: 20220608
  Receipt Date: 20231117
  Transmission Date: 20240110
  Serious: Yes (Hospitalization, Other)
  Sender: FDA-Public Use
  Company Number: US-Blueprint Medicines Corporation-SP-US-2022-001721

PATIENT
  Age: 74 Year
  Sex: Male
  Weight: 91.4 kg

DRUGS (27)
  1. AYVAKIT [Suspect]
     Active Substance: AVAPRITINIB
     Indication: Systemic mastocytosis
     Route: 048
     Dates: start: 20211026
  2. AYVAKIT [Suspect]
     Active Substance: AVAPRITINIB
     Route: 048
     Dates: start: 20211025
  3. AYVAKIT [Suspect]
     Active Substance: AVAPRITINIB
     Route: 048
     Dates: start: 20211019, end: 20211207
  4. AYVAKIT [Suspect]
     Active Substance: AVAPRITINIB
     Route: 048
     Dates: start: 20211216
  5. AYVAKIT [Suspect]
     Active Substance: AVAPRITINIB
     Route: 048
     Dates: start: 20211026
  6. AYVAKIT [Suspect]
     Active Substance: AVAPRITINIB
     Route: 065
  7. carboxymethylcellul-glycerin [Concomitant]
     Indication: Product used for unknown indication
     Route: 047
  8. Ecotrin/Aspirin [Concomitant]
     Indication: Product used for unknown indication
     Route: 048
     Dates: start: 20220520
  9. PERIDEX [Concomitant]
     Active Substance: CHLORHEXIDINE GLUCONATE
     Indication: Product used for unknown indication
     Dosage: RINSE 1 CAPFUL BY MOUTH EVERY MORNING AND EVENING AS DIRECTED. START RINSES 24 HOURS FOLLOWING PROCE
     Route: 049
  10. PLAVIX [Concomitant]
     Active Substance: CLOPIDOGREL BISULFATE
     Indication: Product used for unknown indication
     Route: 048
  11. CVS B12 Gummies [Concomitant]
     Indication: Product used for unknown indication
     Route: 065
  12. ALLEGRA [Concomitant]
     Active Substance: FEXOFENADINE HYDROCHLORIDE
     Indication: Product used for unknown indication
     Route: 048
  13. HYDRODIURIL [Concomitant]
     Active Substance: HYDROCHLOROTHIAZIDE
     Indication: Product used for unknown indication
     Route: 048
  14. AVAPRO [Concomitant]
     Active Substance: IRBESARTAN
     Indication: Product used for unknown indication
     Route: 048
  15. Probiotic Digestive Support [Concomitant]
     Indication: Product used for unknown indication
     Route: 048
  16. Multivitamin Gummies Mens [Concomitant]
     Indication: Product used for unknown indication
     Route: 065
  17. PROTONIX [Concomitant]
     Active Substance: PANTOPRAZOLE SODIUM
     Indication: Product used for unknown indication
     Route: 048
  18. KLOR-CON M20 [Concomitant]
     Active Substance: POTASSIUM CHLORIDE
     Indication: Product used for unknown indication
     Route: 048
  19. SENOKOT [Concomitant]
     Active Substance: SENNOSIDES
     Indication: Product used for unknown indication
     Route: 048
  20. ZANAFLEX [Concomitant]
     Active Substance: TIZANIDINE HYDROCHLORIDE
     Indication: Product used for unknown indication
     Route: 065
  21. viactiv calcium immune [Concomitant]
     Indication: Product used for unknown indication
     Route: 048
  22. FLEXERIL [Concomitant]
     Active Substance: CYCLOBENZAPRINE HYDROCHLORIDE
     Indication: Muscle spasms
     Route: 048
  23. CULTURELLE [Concomitant]
     Active Substance: LACTOBACILLUS RHAMNOSUS
     Indication: Product used for unknown indication
     Route: 048
  24. TOPROL XL [Concomitant]
     Active Substance: METOPROLOL SUCCINATE
     Indication: Hypertension
     Route: 048
  25. alive mens 50+ [Concomitant]
     Indication: Product used for unknown indication
     Route: 048
  26. CIALIS [Concomitant]
     Active Substance: TADALAFIL
     Indication: Product used for unknown indication
     Route: 048
  27. KENALOG [Concomitant]
     Active Substance: TRIAMCINOLONE ACETONIDE
     Indication: Product used for unknown indication
     Route: 061

REACTIONS (22)
  - Arteriosclerosis coronary artery [Unknown]
  - Osteoarthritis [Recovering/Resolving]
  - Haemoglobin decreased [Unknown]
  - Neutrophil count decreased [Unknown]
  - Platelet count decreased [Unknown]
  - Periorbital oedema [Unknown]
  - White blood cell count decreased [Unknown]
  - Haematocrit decreased [Unknown]
  - Swelling face [Unknown]
  - Brain fog [Unknown]
  - Fatigue [Unknown]
  - Alopecia [Unknown]
  - Blood pressure increased [Unknown]
  - Aspartate aminotransferase increased [Unknown]
  - Blood bilirubin increased [Unknown]
  - Pain in extremity [Unknown]
  - Weight decreased [Unknown]
  - Increased tendency to bruise [Recovering/Resolving]
  - Haemorrhagic diathesis [Recovering/Resolving]
  - Contusion [Recovering/Resolving]
  - Tooth fracture [Unknown]
  - Arthralgia [Recovered/Resolved]

NARRATIVE: CASE EVENT DATE: 20220523
